FAERS Safety Report 6368925-8 (Version None)
Quarter: 2009Q3

REPORT INFORMATION
  Report Type: 
  Country: None (occurrence: None)
  Receive Date: 20090918
  Receipt Date: 20090918
  Transmission Date: 20100115
  Serious: Yes (Hospitalization)
  Sender: FDA-Public Use
  Company Number: None

PATIENT
  Sex: Female
  Weight: 53.5244 kg

DRUGS (1)
  1. PROPOXYPHENE HCL AND ACETAMINOPHEN [Suspect]
     Indication: DIZZINESS
     Dosage: 1 TABLET-4X ONE TABLET
     Dates: start: 20090422, end: 20090820

REACTIONS (3)
  - FACIAL BONES FRACTURE [None]
  - FALL [None]
  - SKIN LACERATION [None]
